FAERS Safety Report 12316870 (Version 1)
Quarter: 2016Q2

REPORT INFORMATION
  Report Type: Spontaneous
  Country: US (occurrence: US)
  Receive Date: 20160429
  Receipt Date: 20160429
  Transmission Date: 20160815
  Serious: Yes (Other)
  Sender: FDA-Public Use
  Company Number: US-BEH-2016061698

PATIENT
  Sex: Male
  Weight: 69 kg

DRUGS (8)
  1. PRILOCAINE [Concomitant]
     Active Substance: PRILOCAINE
  2. HIZENTRA [Suspect]
     Active Substance: HUMAN IMMUNOGLOBULIN G
     Indication: IMMUNODEFICIENCY COMMON VARIABLE
     Dosage: HIZENTRA 4 GM
     Route: 058
     Dates: start: 20111110
  3. LIDOCAINE. [Concomitant]
     Active Substance: LIDOCAINE
  4. ZOLOFT [Concomitant]
     Active Substance: SERTRALINE HYDROCHLORIDE
  5. CARBAMAZEPINE. [Concomitant]
     Active Substance: CARBAMAZEPINE
  6. EPIPEN [Concomitant]
     Active Substance: EPINEPHRINE
  7. VITAMIN D [Concomitant]
     Active Substance: CHOLECALCIFEROL
  8. ADDERALL [Concomitant]
     Active Substance: AMPHETAMINE ASPARTATE\AMPHETAMINE SULFATE\DEXTROAMPHETAMINE SACCHARATE\DEXTROAMPHETAMINE SULFATE

REACTIONS (1)
  - Cardiac disorder [Unknown]
